FAERS Safety Report 14429715 (Version 1)
Quarter: 2018Q1

REPORT INFORMATION
  Report Type: Report from Study
  Country: US (occurrence: US)
  Receive Date: 20180123
  Receipt Date: 20180123
  Transmission Date: 20180509
  Serious: No
  Sender: FDA-Public Use
  Company Number: US-AMGEN-USASL2017182189

PATIENT
  Sex: Female

DRUGS (1)
  1. REPATHA [Suspect]
     Active Substance: EVOLOCUMAB
     Indication: PRODUCT USED FOR UNKNOWN INDICATION
     Dosage: UNK
     Route: 065
     Dates: end: 2017

REACTIONS (7)
  - Fatigue [Unknown]
  - Groin pain [Unknown]
  - Arthralgia [Unknown]
  - Weight increased [Unknown]
  - Pain in extremity [Unknown]
  - Mobility decreased [Unknown]
  - Abdominal pain upper [Unknown]
